FAERS Safety Report 6201243-7 (Version None)
Quarter: 2009Q2

REPORT INFORMATION
  Report Type: 
  Country: None (occurrence: None)
  Receive Date: 20090526
  Receipt Date: 20090520
  Transmission Date: 20091009
  Serious: No
  Sender: FDA-Public Use
  Company Number: US-B.I. PHARMACEUTICALS,INC./RIDGEFIELD-2009-BP-05324BP

PATIENT
  Sex: Male

DRUGS (5)
  1. FLOMAX [Suspect]
     Indication: PROSTATOMEGALY
     Dosage: .4MG
  2. ZYRTEC [Concomitant]
     Indication: HYPERSENSITIVITY
  3. WELLBUTRIN [Concomitant]
  4. CLONOPIN [Concomitant]
     Dosage: 1MG
  5. ASPIRIN [Concomitant]

REACTIONS (1)
  - EJACULATION FAILURE [None]
